FAERS Safety Report 12335131 (Version 9)
Quarter: 2016Q3

REPORT INFORMATION
  Report Type: Report from Study
  Country: BE (occurrence: BE)
  Receive Date: 20160504
  Receipt Date: 20160923
  Transmission Date: 20161109
  Serious: Yes (Hospitalization)
  Sender: FDA-Public Use
  Company Number: BE-ABBVIE-16P-013-1554870-00

PATIENT
  Age: 69 Year
  Sex: Female

DRUGS (16)
  1. KEPPRA [Concomitant]
     Active Substance: LEVETIRACETAM
     Indication: PRODUCT USED FOR UNKNOWN INDICATION
  2. DUODOPA [Suspect]
     Active Substance: CARBIDOPA\LEVODOPA
     Dosage: AM=7ML; CD=2.8ML/HR DURING 16HRS; ED=2.2ML
     Route: 050
     Dates: start: 20160129, end: 20160203
  3. PANTOMED [Concomitant]
     Active Substance: DEXPANTHENOL
     Indication: PRODUCT USED FOR UNKNOWN INDICATION
  4. DUODOPA [Suspect]
     Active Substance: CARBIDOPA\LEVODOPA
     Dosage: AM= 7 ML; CD= 2.8 ML/H DURING 16 HRS; ND = 1.4 ML/H DURING 8HRS; ED= 2.2 ML
     Route: 050
     Dates: start: 20160729, end: 20160810
  5. DUODOPA [Suspect]
     Active Substance: CARBIDOPA\LEVODOPA
     Dosage: AM= 7 ML; CD= 2.8 ML/H DURING 16 HRS; ND= 1.7 ML/H DURING 8 HRS; ED= 2.2 ML
     Route: 050
     Dates: start: 20160810
  6. DUODOPA [Suspect]
     Active Substance: CARBIDOPA\LEVODOPA
     Indication: PARKINSON^S DISEASE
     Dosage: AM=7ML; CD=3.5ML/HR DURING 16HRS; ED=1.5ML
     Route: 050
     Dates: start: 20140303, end: 20140307
  7. DUODOPA [Suspect]
     Active Substance: CARBIDOPA\LEVODOPA
     Dosage: DOSES CONTINUOUSLY MONITORED AND ADAPTED.
     Route: 050
     Dates: start: 20140307, end: 20151214
  8. DUODOPA [Suspect]
     Active Substance: CARBIDOPA\LEVODOPA
     Dosage: AM=7ML; CD=3 ML/HR DURING 16HRS; ED=2.2 ML
     Route: 050
     Dates: start: 20160509, end: 20160712
  9. LOORTAN [Concomitant]
     Indication: PRODUCT USED FOR UNKNOWN INDICATION
  10. DUODOPA [Suspect]
     Active Substance: CARBIDOPA\LEVODOPA
     Dosage: AM=7ML; CD=2.9ML/HR DURING 16HRS; ED=2.2ML
     Route: 050
     Dates: start: 20151214, end: 20160129
  11. DUODOPA [Suspect]
     Active Substance: CARBIDOPA\LEVODOPA
     Dosage: AM=7ML; CD=2.9ML/HR DURING 16HRS; ED
     Route: 050
     Dates: start: 20160203, end: 20160509
  12. DAFLON [Concomitant]
     Active Substance: DIOSMIN\HESPERIDIN
     Indication: PRODUCT USED FOR UNKNOWN INDICATION
  13. RIVOTRIL [Concomitant]
     Active Substance: CLONAZEPAM
     Indication: PRODUCT USED FOR UNKNOWN INDICATION
  14. DUODOPA [Suspect]
     Active Substance: CARBIDOPA\LEVODOPA
     Dosage: AM= 7 ML; CD= 2.8 ML/H DURING 16 HRS; ND= 1.2 ML/H DURING 8HRS; ED= 2.2 ML
     Route: 050
     Dates: start: 20160712, end: 20160729
  15. PROLOPA HBS [Concomitant]
     Active Substance: BENSERAZIDE\LEVODOPA
     Indication: PRODUCT USED FOR UNKNOWN INDICATION
     Dosage: FORM STRENGTH= 100MG/25MG;
  16. STALEVO [Concomitant]
     Active Substance: CARBIDOPA\ENTACAPONE\LEVODOPA
     Indication: PRODUCT USED FOR UNKNOWN INDICATION
     Dosage: FORM STRENGTH= 150MG/ 37.5MG/ 200MG; 6/DAY AS RESCUE MEDICATION

REACTIONS (14)
  - Muscle rigidity [Not Recovered/Not Resolved]
  - Dysphonia [Unknown]
  - Device dislocation [Recovered/Resolved]
  - On and off phenomenon [Recovered/Resolved]
  - Fall [Unknown]
  - Balance disorder [Unknown]
  - Syncope [Unknown]
  - Freezing phenomenon [Unknown]
  - Agitation [Unknown]
  - Dyskinesia [Unknown]
  - Weight decreased [Unknown]
  - On and off phenomenon [Recovering/Resolving]
  - Fear [Unknown]
  - Asthenia [Unknown]

NARRATIVE: CASE EVENT DATE: 20160429
